FAERS Safety Report 6059209-6 (Version None)
Quarter: 2009Q1

REPORT INFORMATION
  Report Type: 
  Country: None (occurrence: None)
  Receive Date: 20090130
  Receipt Date: 20090120
  Transmission Date: 20090719
  Serious: Yes (Hospitalization)
  Sender: FDA-Public Use
  Company Number: US-JNJFOC-20090103891

PATIENT
  Sex: Female
  Weight: 87.54 kg

DRUGS (14)
  1. INFLIXIMAB [Suspect]
     Indication: PSORIATIC ARTHROPATHY
     Route: 042
  2. INFLIXIMAB [Suspect]
     Indication: PSORIASIS
     Route: 042
  3. METHOTREXATE [Concomitant]
     Indication: PSORIATIC ARTHROPATHY
  4. PREDNISONE [Concomitant]
     Route: 048
  5. PREDNISONE [Concomitant]
     Indication: PSORIATIC ARTHROPATHY
     Route: 048
  6. TACLONEX [Concomitant]
  7. TRIAMCINOLONE ACETONIDE [Concomitant]
  8. CYMBALTA [Concomitant]
     Route: 048
  9. SYNTHROID [Concomitant]
     Dosage: 137 MCG
     Route: 048
  10. LYRICA [Concomitant]
     Route: 048
  11. CYCLOSPORINE [Concomitant]
     Route: 048
  12. CYCLOSPORINE [Concomitant]
     Route: 048
  13. AMBIEN [Concomitant]
     Indication: INSOMNIA
     Dosage: AT BEDTIME AS NEEDED
     Route: 048
  14. DARVOCET [Concomitant]
     Indication: PAIN
     Dosage: 2 TABLETS EVERY 4 HOURS AS NEEDED

REACTIONS (3)
  - PSORIASIS [None]
  - PSORIATIC ARTHROPATHY [None]
  - THERAPEUTIC RESPONSE DECREASED [None]
